FAERS Safety Report 8430392-8 (Version None)
Quarter: 2012Q2

REPORT INFORMATION
  Report Type: 
  Country: None (occurrence: None)
  Receive Date: 20120612
  Receipt Date: 20120531
  Transmission Date: 20120825
  Serious: Yes (Hospitalization)
  Sender: FDA-Public Use
  Company Number: US-ACTELION-A-US2012-66308

PATIENT

DRUGS (3)
  1. FLOLAN [Concomitant]
  2. TRACLEER [Suspect]
     Indication: PULMONARY ARTERIAL HYPERTENSION
     Dosage: UNK
     Route: 048
  3. DIGOXIN [Suspect]

REACTIONS (6)
  - CARDIAC FAILURE CONGESTIVE [None]
  - HEART RATE DECREASED [None]
  - CARDIOACTIVE DRUG LEVEL INCREASED [None]
  - FALL [None]
  - SWELLING [None]
  - RENAL IMPAIRMENT [None]
